FAERS Safety Report 13276872 (Version 1)
Quarter: 2017Q1

REPORT INFORMATION
  Report Type: Spontaneous
  Country: US (occurrence: US)
  Receive Date: 20170228
  Receipt Date: 20170228
  Transmission Date: 20170428
  Serious: No
  Sender: FDA-Public Use
  Company Number: US-BAYER-2017-038518

PATIENT
  Age: 5 Year
  Sex: Male
  Weight: 29 kg

DRUGS (1)
  1. MIRALAX [Suspect]
     Active Substance: POLYETHYLENE GLYCOL 3350
     Indication: GASTROINTESTINAL DISORDER
     Route: 048

REACTIONS (3)
  - Unevaluable event [Not Recovered/Not Resolved]
  - Eye disorder [Not Recovered/Not Resolved]
  - Product use issue [Not Recovered/Not Resolved]
